FAERS Safety Report 20916719 (Version 1)
Quarter: 2022Q2

REPORT INFORMATION
  Report Type: Spontaneous
  Country: US (occurrence: US)
  Receive Date: 20220605
  Receipt Date: 20220605
  Transmission Date: 20220721
  Serious: Yes (Other)
  Sender: FDA-Public Use
  Company Number: US-JNJFOC-20220556938

PATIENT
  Age: 78 Year
  Sex: Female

DRUGS (10)
  1. HALOPERIDOL [Suspect]
     Active Substance: HALOPERIDOL
     Indication: Schizophrenia
     Dosage: 1MG QAM, 3MG QHS
     Route: 065
  2. HALOPERIDOL [Suspect]
     Active Substance: HALOPERIDOL
     Indication: Dementia
  3. RISPERDAL [Suspect]
     Active Substance: RISPERIDONE
     Indication: Schizophrenia
     Route: 065
  4. RISPERDAL [Suspect]
     Active Substance: RISPERIDONE
     Indication: Dementia
  5. DULOXETINE [Suspect]
     Active Substance: DULOXETINE
     Indication: Schizophrenia
     Dosage: QAM
     Route: 065
  6. DULOXETINE [Suspect]
     Active Substance: DULOXETINE
     Indication: Dementia
  7. DEPAKOTE [Suspect]
     Active Substance: DIVALPROEX SODIUM
     Indication: Schizophrenia
     Dosage: QHS
     Route: 065
  8. DEPAKOTE [Suspect]
     Active Substance: DIVALPROEX SODIUM
     Indication: Dementia
  9. MELATONIN [Suspect]
     Active Substance: MELATONIN
     Indication: Schizophrenia
     Dosage: QHS PRN
     Route: 065
  10. MELATONIN [Suspect]
     Active Substance: MELATONIN
     Indication: Dementia

REACTIONS (2)
  - Tourette^s disorder [Recovering/Resolving]
  - Incorrect dose administered [Unknown]
